FAERS Safety Report 26116488 (Version 1)
Quarter: 2025Q4

REPORT INFORMATION
  Report Type: Spontaneous
  Country: US (occurrence: None)
  Receive Date: 20251202
  Receipt Date: 20251202
  Transmission Date: 20260118
  Serious: Yes (Hospitalization)
  Sender: FDA-CTU
  Company Number: None

PATIENT
  Age: 21 Year
  Sex: Male

DRUGS (13)
  1. BOTOX [Suspect]
     Active Substance: ONABOTULINUMTOXINA
     Indication: Dystonia
     Dosage: 300 TOTAL - TOT EVERY 90 DAYSINTRAMUSCULAR EVERY 90 DAYS;?
     Route: 030
     Dates: start: 20250701
  2. CLOBAZAM [Concomitant]
     Active Substance: CLOBAZAM
  3. AMITRIPTYLINE [Concomitant]
     Active Substance: AMITRIPTYLINE
  4. ELIQUIS [Concomitant]
     Active Substance: APIXABAN
  5. RISPERIDONE [Concomitant]
     Active Substance: RISPERIDONE
  6. CLONIDINE [Concomitant]
     Active Substance: CLONIDINE
  7. VALTOCO 15MG NAS SP [Concomitant]
  8. SERTRALINE [Concomitant]
     Active Substance: SERTRALINE HYDROCHLORIDE
  9. GUANFACINE [Concomitant]
     Active Substance: GUANFACINE
  10. ONDANSETRON [Concomitant]
     Active Substance: ONDANSETRON
  11. DIVALPROEX SODIUM [Concomitant]
     Active Substance: DIVALPROEX SODIUM
  12. ARIPIPRAZOLE [Concomitant]
     Active Substance: ARIPIPRAZOLE
  13. LEVOCARNITINE 10% ORAL SOLUTION [Concomitant]

REACTIONS (2)
  - Pneumonia [None]
  - Treatment delayed [None]

NARRATIVE: CASE EVENT DATE: 20250825
